FAERS Safety Report 7790997-4 (Version None)
Quarter: 2011Q4

REPORT INFORMATION
  Report Type: 
  Country: None (occurrence: None)
  Receive Date: 20111002
  Receipt Date: 20110927
  Transmission Date: 20120403
  Serious: Yes (Hospitalization, Other)
  Sender: FDA-Public Use
  Company Number: RO-BRISTOL-MYERS SQUIBB COMPANY-16106742

PATIENT
  Age: 74 Year
  Sex: Male
  Weight: 68 kg

DRUGS (9)
  1. PEMETREXED DISODIUM [Suspect]
     Indication: NON-SMALL CELL LUNG CANCER
     Route: 042
     Dates: start: 20101207, end: 20110104
  2. NECITUMUMAB [Suspect]
     Indication: NON-SMALL CELL LUNG CANCER
     Route: 042
     Dates: start: 20101207, end: 20110104
  3. ROSUVASTATIN [Concomitant]
  4. CISPLATIN [Suspect]
     Indication: NON-SMALL CELL LUNG CANCER
     Route: 042
     Dates: start: 20101207, end: 20110104
  5. PLAVIX [Concomitant]
  6. CARVEDILOL [Concomitant]
     Dates: start: 20060101
  7. TRIMETAZIDINE [Concomitant]
     Dates: start: 20060101
  8. GLYBURIDE [Concomitant]
  9. TRAMADOL HCL [Concomitant]

REACTIONS (2)
  - NEUTROPENIA [None]
  - MEDICATION ERROR [None]
